FAERS Safety Report 4696824-6 (Version None)
Quarter: 2005Q2

REPORT INFORMATION
  Report Type: 
  Country: None (occurrence: None)
  Receive Date: 20050620
  Receipt Date: 20050606
  Transmission Date: 20051028
  Serious: Yes (Hospitalization, Other)
  Sender: FDA-Public Use
  Company Number: HQWYE271106JUN05

PATIENT
  Age: 24 Year
  Sex: Male

DRUGS (6)
  1. ADVIL [Suspect]
     Indication: INFLUENZA
     Dosage: 400 MG TABLET 4 TO 5 PER DAY ORAL
     Route: 048
     Dates: start: 20050302, end: 20050306
  2. ACETAMINOPHEN [Concomitant]
  3. PRIMPERAN TAB [Concomitant]
  4. SPASFON (PHLOROGLUCINOL/TRIMETHYLPHLOROGLUCINOL) [Concomitant]
  5. OMEPRAZOLE [Concomitant]
  6. TRAMADOL HCL [Concomitant]

REACTIONS (5)
  - GASTRIC ULCER [None]
  - HYPERKALAEMIA [None]
  - PYREXIA [None]
  - RENAL FAILURE ACUTE [None]
  - VOMITING [None]
